FAERS Safety Report 25122318 (Version 4)
Quarter: 2025Q2

REPORT INFORMATION
  Report Type: Report from Study
  Country: US (occurrence: US)
  Receive Date: 20250326
  Receipt Date: 20250529
  Transmission Date: 20250716
  Serious: Yes (Other)
  Sender: NOVARTIS
  Company Number: US-002147023-NVSC2025US049489

PATIENT
  Sex: Female

DRUGS (3)
  1. KESIMPTA [Suspect]
     Active Substance: OFATUMUMAB
     Indication: Multiple sclerosis
     Route: 065
  2. PROPRANOLOL [Suspect]
     Active Substance: PROPRANOLOL HYDROCHLORIDE
     Indication: Product used for unknown indication
     Route: 065
  3. COPAXONE [Suspect]
     Active Substance: GLATIRAMER ACETATE
     Indication: Multiple sclerosis
     Route: 065

REACTIONS (15)
  - Multiple sclerosis [Unknown]
  - Crohn^s disease [Unknown]
  - Depression [Recovered/Resolved]
  - Stress [Unknown]
  - Arthralgia [Unknown]
  - Fatigue [Unknown]
  - Premenstrual syndrome [Unknown]
  - Oropharyngeal discomfort [Unknown]
  - Affect lability [Unknown]
  - Hypoaesthesia [Unknown]
  - Polyp [Unknown]
  - Cyst [Unknown]
  - Gait disturbance [Unknown]
  - Ill-defined disorder [Unknown]
  - Fall [Unknown]
